FAERS Safety Report 11932772 (Version 1)
Quarter: 2016Q1

REPORT INFORMATION
  Report Type: Spontaneous
  Country: BE (occurrence: BE)
  Receive Date: 20160120
  Receipt Date: 20160120
  Transmission Date: 20160526
  Serious: Yes (Other)
  Sender: FDA-Public Use
  Company Number: PHHY2016BE003028

PATIENT
  Sex: Female

DRUGS (1)
  1. AMOXICILLINE BEXAL [Suspect]
     Active Substance: AMOXICILLIN
     Indication: PRODUCT USED FOR UNKNOWN INDICATION
     Dosage: 1000 MG, UNK
     Route: 048

REACTIONS (2)
  - Lip swelling [Recovered/Resolved]
  - Pharyngeal oedema [Recovered/Resolved]
